FAERS Safety Report 20608106 (Version 4)
Quarter: 2022Q3

REPORT INFORMATION
  Report Type: Spontaneous
  Country: CN (occurrence: CN)
  Receive Date: 20220317
  Receipt Date: 20220916
  Transmission Date: 20221027
  Serious: Yes (Hospitalization, Other)
  Sender: FDA-Public Use
  Company Number: CN-SA-2022SA083084

PATIENT
  Age: 50 Year
  Sex: Female
  Weight: 60 kg

DRUGS (10)
  1. SEVELAMER CARBONATE [Suspect]
     Active Substance: SEVELAMER CARBONATE
     Indication: Hyperphosphataemia
     Dosage: 1600 MG, TID
     Route: 048
     Dates: start: 20220108, end: 20220218
  2. ERYTHROPOIETIN [Concomitant]
     Active Substance: ERYTHROPOIETIN
     Indication: Nephrogenic anaemia
     Dosage: UNK
     Dates: start: 20211007, end: 20220131
  3. ERYTHROPOIETIN [Concomitant]
     Active Substance: ERYTHROPOIETIN
     Dosage: UNK
     Dates: start: 20220204
  4. FERRIC POLYSACCHARIDE COMPLEX [Concomitant]
     Active Substance: FERRIC POLYSACCHARIDE COMPLEX
     Indication: Nephrogenic anaemia
     Dosage: UNK
     Dates: start: 20220121
  5. LEVOCARNITINE [Concomitant]
     Active Substance: LEVOCARNITINE
     Indication: Supplementation therapy
     Dosage: UNK
     Dates: start: 20201007
  6. NADROPARIN CALCIUM [Concomitant]
     Active Substance: NADROPARIN CALCIUM
     Dosage: UNK
     Dates: start: 20210113
  7. AMLODIPINE BESYLATE [Concomitant]
     Active Substance: AMLODIPINE BESYLATE
     Indication: Hypertension
     Dosage: UNK
     Dates: start: 20211110
  8. CARVEDILOL STADA ARZNEIMITTEL GMBH [Concomitant]
     Indication: Hypertension
     Dosage: UNK
     Dates: start: 20211110
  9. CINACALCET HYDROCHLORIDE [Concomitant]
     Active Substance: CINACALCET HYDROCHLORIDE
     Indication: Hyperthyroidism
     Dosage: UNK
     Dates: start: 20211107
  10. HEPARIN CALCIUM [Concomitant]
     Active Substance: HEPARIN CALCIUM
     Indication: Coagulopathy
     Dosage: UNK
     Dates: start: 20210113

REACTIONS (7)
  - Myocardial infarction [Recovering/Resolving]
  - Chest discomfort [Recovering/Resolving]
  - Chest pain [Recovering/Resolving]
  - Palpitations [Recovering/Resolving]
  - Azotaemia [Unknown]
  - Arteriosclerosis coronary artery [Not Recovered/Not Resolved]
  - Chronic gastritis [Unknown]

NARRATIVE: CASE EVENT DATE: 20220202
